FAERS Safety Report 4506916-X (Version None)
Quarter: 2004Q4

REPORT INFORMATION
  Report Type: 
  Country: None (occurrence: None)
  Receive Date: 20041117
  Receipt Date: 20041104
  Transmission Date: 20050328
  Serious: No
  Sender: FDA-Public Use
  Company Number: CERZ-10696

PATIENT
  Age: 11 Year
  Sex: Male

DRUGS (3)
  1. CEREZYME [Suspect]
     Indication: GAUCHER'S DISEASE
     Dosage: 1200 UNITS Q2WKS IV
     Route: 042
  2. HEPARIN ^DAKOTA PHARM^ [Suspect]
     Dosage: 2500 UNITS ONCE IV
     Route: 042
     Dates: start: 20011120, end: 20011120
  3. REFLUDAN [Concomitant]

REACTIONS (7)
  - COUGH [None]
  - DYSPNOEA [None]
  - ERYTHEMA [None]
  - RASH [None]
  - RASH ERYTHEMATOUS [None]
  - RASH PUSTULAR [None]
  - THROAT TIGHTNESS [None]
